FAERS Safety Report 4619161-4 (Version None)
Quarter: 2005Q1

REPORT INFORMATION
  Report Type: 
  Country: None (occurrence: None)
  Receive Date: 20050325
  Receipt Date: 20050315
  Transmission Date: 20050727
  Serious: Yes (Hospitalization, Congenital Anomaly)
  Sender: FDA-Public Use
  Company Number: FR-GLAXOSMITHKLINE-B0375662A

PATIENT

DRUGS (6)
  1. ZIDOVUDINE [Suspect]
     Indication: HIV INFECTION
     Route: 042
     Dates: start: 20040604
  2. ZIDOVUDINE [Suspect]
  3. VIREAD [Suspect]
     Indication: HIV INFECTION
     Dates: start: 20020429
  4. ZALCITABINE [Suspect]
     Indication: HIV INFECTION
     Dates: start: 20020429
  5. DIDANOSINE [Suspect]
     Indication: HIV INFECTION
     Dates: end: 20020429
  6. KALETRA [Suspect]
     Indication: HIV INFECTION
     Dates: start: 20020429

REACTIONS (3)
  - DEVELOPMENTAL DELAY [None]
  - DRUG EXPOSURE DURING PREGNANCY [None]
  - MENTAL RETARDATION SEVERITY UNSPECIFIED [None]
